FAERS Safety Report 9331084 (Version 3)
Quarter: 2013Q2

REPORT INFORMATION
  Report Type: Spontaneous
  Country: US (occurrence: US)
  Receive Date: 20130605
  Receipt Date: 20130618
  Transmission Date: 20140414
  Serious: Yes (Death, Hospitalization, Other)
  Sender: FDA-Public Use
  Company Number: US-ABBOTT-13P-163-1099538-00

PATIENT
  Age: 92 Year
  Sex: Male

DRUGS (2)
  1. LUPRON DEPOT [Suspect]
     Indication: PROSTATE CANCER
     Dates: start: 2006, end: 20130321
  2. COUMADIN [Concomitant]
     Indication: ANTICOAGULANT THERAPY

REACTIONS (5)
  - Prostate cancer [Fatal]
  - Vomiting [Recovered/Resolved]
  - Cardio-respiratory arrest [Fatal]
  - Renal failure [Fatal]
  - Hot flush [Recovered/Resolved]
